FAERS Safety Report 24340620 (Version 2)
Quarter: 2024Q4

REPORT INFORMATION
  Report Type: Report from Study
  Country: US (occurrence: US)
  Receive Date: 20240919
  Receipt Date: 20241004
  Transmission Date: 20250114
  Serious: Yes (Life-Threatening, Hospitalization, Disabling)
  Sender: MYLAN
  Company Number: US-MYLANLABS-2024M1082094

PATIENT
  Age: 60 Year
  Sex: Female
  Weight: 77.1 kg

DRUGS (2)
  1. XANAX [Suspect]
     Active Substance: ALPRAZOLAM
     Indication: Anxiety
     Dosage: 0.5 MILLIGRAM, BID (TWO TIMES ADAY)
     Route: 065
     Dates: start: 20230501, end: 20231101
  2. XANAX [Suspect]
     Active Substance: ALPRAZOLAM
     Indication: Panic attack
     Dosage: 1 MILLIGRAM, TID (THREE TIMES A DAY)
     Route: 048
     Dates: start: 20231102, end: 20240521

REACTIONS (3)
  - Suicidal ideation [Recovered/Resolved]
  - Drug withdrawal syndrome [Recovered/Resolved]
  - Urine analysis abnormal [Unknown]

NARRATIVE: CASE EVENT DATE: 20240611
